FAERS Safety Report 7243613-4 (Version None)
Quarter: 2011Q1

REPORT INFORMATION
  Report Type: 
  Country: None (occurrence: None)
  Receive Date: 20110125
  Receipt Date: 20110114
  Transmission Date: 20110831
  Serious: Yes (Hospitalization, Other)
  Sender: FDA-Public Use
  Company Number: PHHY2011US02953

PATIENT
  Age: 15 Year
  Sex: Male

DRUGS (4)
  1. AMITRIPTYLINE [Suspect]
     Indication: SPONDYLOARTHROPATHY
     Dosage: 10 MG, QD
     Route: 048
  2. DICLOFENAC POTASSIUM [Suspect]
     Indication: SPONDYLOARTHROPATHY
     Dosage: 50 MG, BID
     Route: 048
  3. ETANERCEPT [Suspect]
     Dosage: 25 MG TWICE A WEEK
     Route: 058
     Dates: start: 20090620
  4. ETANERCEPT [Suspect]
     Indication: SPONDYLOARTHROPATHY
     Dosage: 25 MG TWICE A WEEK
     Route: 058
     Dates: end: 20090601

REACTIONS (2)
  - ABDOMINAL PAIN [None]
  - APPENDICITIS [None]
